FAERS Safety Report 11201402 (Version 1)
Quarter: 2015Q2

REPORT INFORMATION
  Report Type: Spontaneous
  Country: GR (occurrence: None)
  Receive Date: 20150617
  Receipt Date: 20150617
  Transmission Date: 20150821
  Serious: Yes (Hospitalization)
  Sender: FDA-Public Use
  Company Number: UCM201506-000398

PATIENT
  Age: 36 Year
  Sex: Female

DRUGS (1)
  1. TOPIRAMATE (TOPIRAMATE) (TOPIRAMATE) [Suspect]
     Active Substance: TOPIRAMATE
     Indication: MIGRAINE

REACTIONS (3)
  - Angle closure glaucoma [None]
  - Iridocyclitis [None]
  - Off label use [None]
